FAERS Safety Report 6185087-0 (Version None)
Quarter: 2009Q2

REPORT INFORMATION
  Report Type: 
  Country: None (occurrence: None)
  Receive Date: 20090507
  Receipt Date: 20090427
  Transmission Date: 20091009
  Serious: Yes (Hospitalization)
  Sender: FDA-Public Use
  Company Number: 2009-01099

PATIENT
  Age: 61 Year
  Sex: Male
  Weight: 174 kg

DRUGS (8)
  1. VELCADE [Suspect]
     Indication: MULTIPLE MYELOMA
     Dosage: 13 MG/M2, INTRAVENOUS
     Route: 042
     Dates: start: 20071217, end: 20071227
  2. DEXAMETHASONE 4MG TAB [Concomitant]
  3. SULFAMETHOXAZOLE AND TRIMETHOPRIM [Concomitant]
  4. MEXILETINE HYDROCHLORIDE (MEXILETINE HYDROCHLORIDE) [Concomitant]
  5. ACYCLOVIR [Concomitant]
  6. ZANTAC 150 [Concomitant]
  7. GASLON (RSOGLADINE MALEATE) [Concomitant]
  8. DIFLUCAN [Concomitant]

REACTIONS (4)
  - ALANINE AMINOTRANSFERASE INCREASED [None]
  - DIARRHOEA [None]
  - DRUG RASH WITH EOSINOPHILIA AND SYSTEMIC SYMPTOMS [None]
  - HERPES ZOSTER [None]
